FAERS Safety Report 19723808 (Version 2)
Quarter: 2021Q3

REPORT INFORMATION
  Report Type: Spontaneous
  Country: FR (occurrence: FR)
  Receive Date: 20210819
  Receipt Date: 20210825
  Transmission Date: 20211014
  Serious: Yes (Death)
  Sender: FDA-Public Use
  Company Number: FR-UCBSA-2021039374

PATIENT
  Age: 73 Year
  Sex: Male

DRUGS (4)
  1. KEPPRA [Suspect]
     Active Substance: LEVETIRACETAM
     Indication: PRODUCT USED FOR UNKNOWN INDICATION
     Dosage: UNK
  2. VALIUM [Suspect]
     Active Substance: DIAZEPAM
     Indication: SEIZURE
     Dosage: VALIUM 10 MG/2 ML SOLUTION FOR INJECTION (5 MG)
     Route: 042
     Dates: start: 20210715
  3. MIDAZOLAM. [Suspect]
     Active Substance: MIDAZOLAM
     Indication: PRODUCT USED FOR UNKNOWN INDICATION
     Dosage: UNK
  4. VALIUM [Suspect]
     Active Substance: DIAZEPAM
     Indication: ANXIETY

REACTIONS (4)
  - Coma [Fatal]
  - Cardiac arrest [Fatal]
  - Respiratory distress [Fatal]
  - Hypotension [Fatal]

NARRATIVE: CASE EVENT DATE: 20210715
